FAERS Safety Report 10004868 (Version 1)
Quarter: 2014Q1

REPORT INFORMATION
  Report Type: Spontaneous
  Country: IR (occurrence: IR)
  Receive Date: 20140312
  Receipt Date: 20140312
  Transmission Date: 20141002
  Serious: Yes (Hospitalization)
  Sender: FDA-Public Use
  Company Number: PHHY2014IR027096

PATIENT
  Age: 26 Year
  Sex: Female

DRUGS (1)
  1. METHADONE [Suspect]
     Dosage: 10 ML

REACTIONS (15)
  - Acute respiratory distress syndrome [Recovered/Resolved]
  - Respiratory distress [Recovered/Resolved]
  - Hypoxia [Recovered/Resolved]
  - Lung infiltration [Recovered/Resolved]
  - Hypoventilation [Recovered/Resolved]
  - Bradypnoea [Recovered/Resolved]
  - Respiratory acidosis [Recovered/Resolved]
  - Coma [Recovered/Resolved]
  - Unresponsive to stimuli [Recovered/Resolved]
  - Miosis [Recovered/Resolved]
  - Hyperhidrosis [Recovered/Resolved]
  - Agitation [Recovered/Resolved]
  - Toxicity to various agents [Recovered/Resolved]
  - Accidental overdose [Unknown]
  - Rales [Recovered/Resolved]
